FAERS Safety Report 7224396-0 (Version None)
Quarter: 2011Q1

REPORT INFORMATION
  Report Type: 
  Country: None (occurrence: None)
  Receive Date: 20110113
  Receipt Date: 20110107
  Transmission Date: 20110831
  Serious: Yes (Hospitalization)
  Sender: FDA-Public Use
  Company Number: US-JNJFOC-20110102297

PATIENT
  Sex: Male
  Weight: 78.93 kg

DRUGS (11)
  1. PLAVIX [Concomitant]
     Indication: THROMBOSIS
     Route: 048
  2. METFORMIN [Concomitant]
     Indication: DIABETES MELLITUS
     Route: 048
  3. FENTANYL-100 [Suspect]
     Indication: BACK PAIN
     Dosage: NDC 0781-7112-55
     Route: 062
  4. SIMVASTATIN [Concomitant]
     Indication: THROMBOSIS
     Route: 048
  5. SIMVASTATIN [Concomitant]
     Indication: BLOOD CHOLESTEROL ABNORMAL
     Route: 048
  6. METFORMIN [Concomitant]
     Route: 048
  7. OXYCODONE [Concomitant]
     Indication: BREAKTHROUGH PAIN
     Route: 048
  8. ENALAPRIL [Concomitant]
     Indication: HYPERTENSION
     Route: 048
  9. FENTANYL-100 [Suspect]
     Indication: DIABETIC NEUROPATHY
     Dosage: NDC 0781-7112-55
     Route: 062
  10. MULTI-VITAMINS [Concomitant]
     Indication: MEDICAL DIET
     Route: 048
  11. ASPIRIN [Concomitant]
     Indication: PROPHYLAXIS
     Route: 048

REACTIONS (9)
  - PNEUMONIA [None]
  - VIITH NERVE PARALYSIS [None]
  - SLEEP DISORDER [None]
  - DRUG DISPENSING ERROR [None]
  - CARDIAC FAILURE CONGESTIVE [None]
  - CARDIAC DISORDER [None]
  - COLLAPSE OF LUNG [None]
  - MYOCARDIAL INFARCTION [None]
  - ADVERSE EVENT [None]
